FAERS Safety Report 9897872 (Version 1)
Quarter: 2014Q1

REPORT INFORMATION
  Report Type: Spontaneous
  Country: US (occurrence: US)
  Receive Date: 20140214
  Receipt Date: 20140214
  Transmission Date: 20141002
  Serious: No
  Sender: FDA-Public Use
  Company Number: US-PFIZER INC-2014038343

PATIENT
  Sex: Female

DRUGS (5)
  1. ZITHROMAX [Suspect]
     Dosage: UNK
  2. BIAXIN [Suspect]
     Dosage: UNK
  3. CELEXA [Suspect]
     Dosage: UNK
  4. HYDROCODONE [Suspect]
     Dosage: UNK
  5. SEROQUEL [Suspect]
     Dosage: UNK

REACTIONS (1)
  - Drug hypersensitivity [Unknown]
